FAERS Safety Report 8373688-0 (Version None)
Quarter: 2012Q2

REPORT INFORMATION
  Report Type: 
  Country: None (occurrence: None)
  Receive Date: 20120521
  Receipt Date: 20120511
  Transmission Date: 20120825
  Serious: Yes (Hospitalization)
  Sender: FDA-Public Use
  Company Number: IN-ASTRAZENECA-2012SE30318

PATIENT
  Sex: Male
  Weight: 3 kg

DRUGS (3)
  1. CEFOTAXIME [Suspect]
  2. MEROPENEM [Suspect]
     Route: 042
  3. AMIKACIN [Suspect]

REACTIONS (4)
  - CHOLECYSTITIS INFECTIVE [None]
  - ENDOCARDITIS [None]
  - CANDIDIASIS [None]
  - HEPATITIS [None]
